FAERS Safety Report 8047324-7 (Version None)
Quarter: 2012Q1

REPORT INFORMATION
  Report Type: 
  Country: None (occurrence: None)
  Receive Date: 20120116
  Receipt Date: 20120103
  Transmission Date: 20120608
  Serious: Yes (Life-Threatening, Other)
  Sender: FDA-Public Use
  Company Number: IT-NOVOPROD-342462

PATIENT
  Age: 68 Year
  Sex: Male

DRUGS (4)
  1. VICTOZA [Suspect]
     Indication: DIABETES MELLITUS
     Dosage: 1.8 MG, QD
     Route: 065
     Dates: start: 20101122, end: 20111222
  2. COVERSYL                           /00790702/ [Concomitant]
     Dosage: 10 MG, QD
     Route: 048
     Dates: start: 20080916
  3. IRBESARTAN [Concomitant]
     Dosage: 1 TAB, QD
     Route: 048
     Dates: start: 20080916
  4. DRAMION                            /00014302/ [Concomitant]
     Dosage: 3 TAB, QD
     Route: 048
     Dates: start: 20100305, end: 20111222

REACTIONS (1)
  - PANCREATIC NEOPLASM [None]
